FAERS Safety Report 7031553-5 (Version None)
Quarter: 2010Q4

REPORT INFORMATION
  Report Type: 
  Country: None (occurrence: None)
  Receive Date: 20101006
  Receipt Date: 20101006
  Transmission Date: 20110411
  Serious: Yes (Other)
  Sender: FDA-Public Use
  Company Number: None

PATIENT

DRUGS (1)
  1. ABILIFY [Suspect]
     Dosage: 10 MG PO DAILY
     Route: 048

REACTIONS (4)
  - INSOMNIA [None]
  - PARKINSONIAN REST TREMOR [None]
  - SCAB [None]
  - SLUGGISHNESS [None]
